FAERS Safety Report 8902097 (Version 5)
Quarter: 2014Q2

REPORT INFORMATION
  Report Type: Report from Study
  Country: DE (occurrence: DE)
  Receive Date: 20121112
  Receipt Date: 20140602
  Transmission Date: 20141212
  Serious: Yes (Death, Life-Threatening, Hospitalization, Disabling)
  Sender: FDA-Public Use
  Company Number: PHHO2012DE007665

PATIENT
  Age: 56 Year
  Sex: Male
  Weight: 69 kg

DRUGS (5)
  1. AFINITOR [Suspect]
     Indication: NEUROENDOCRINE TUMOUR
     Dosage: 10 MG, UNK
     Route: 048
     Dates: start: 20120502, end: 20120513
  2. AFINITOR [Suspect]
     Dosage: 10 MG, UNK
     Route: 048
     Dates: start: 20120604, end: 20120605
  3. AFINITOR [Suspect]
     Dosage: 10 MG, UNK
     Route: 048
     Dates: start: 20120620, end: 20120627
  4. AFINITOR [Suspect]
     Dosage: UNK MG, UNK
     Route: 048
     Dates: end: 20120727
  5. SOM230 [Suspect]
     Indication: NEUROENDOCRINE TUMOUR
     Dosage: 60 MG, UNK
     Route: 030
     Dates: start: 20120206, end: 20120727

REACTIONS (6)
  - Anaemia [Recovered/Resolved]
  - Enterovesical fistula [Not Recovered/Not Resolved]
  - Impaired healing [Recovered/Resolved]
  - Urosepsis [Fatal]
  - Constipation [Recovering/Resolving]
  - Subileus [Recovering/Resolving]
